APPROVED DRUG PRODUCT: HYDROCORTISONE
Active Ingredient: HYDROCORTISONE
Strength: 10MG
Dosage Form/Route: TABLET;ORAL
Application: A088539 | Product #001
Applicant: ROXANE LABORATORIES INC
Approved: Mar 21, 1984 | RLD: No | RS: No | Type: DISCN